FAERS Safety Report 6828177-9 (Version None)
Quarter: 2010Q3

REPORT INFORMATION
  Report Type: 
  Country: None (occurrence: None)
  Receive Date: 20100709
  Receipt Date: 20100622
  Transmission Date: 20110219
  Serious: Yes (Hospitalization)
  Sender: FDA-Public Use
  Company Number: US-ROCHE-714083

PATIENT
  Sex: Male
  Weight: 92 kg

DRUGS (13)
  1. BEVACIZUMAB [Suspect]
     Indication: PRODUCT USED FOR UNKNOWN INDICATION
     Route: 065
     Dates: start: 20090609
  2. LEUCOVORIN CALCIUM [Suspect]
     Indication: PRODUCT USED FOR UNKNOWN INDICATION
     Route: 065
     Dates: start: 20090609
  3. LEUCOVORIN CALCIUM [Suspect]
     Route: 065
  4. FLUOROURACIL [Suspect]
     Indication: PRODUCT USED FOR UNKNOWN INDICATION
     Route: 065
     Dates: start: 20090609
  5. FLUOROURACIL [Suspect]
     Route: 065
  6. BLINDED ENZASTAURIN [Suspect]
     Indication: PRODUCT USED FOR UNKNOWN INDICATION
     Route: 065
     Dates: start: 20090609
  7. BLINDED ENZASTAURIN [Suspect]
     Route: 065
  8. ZOFRAN [Concomitant]
     Dates: start: 20090609
  9. CRESOL [Concomitant]
     Dosage: DRUG: UREA-CRESOL-SULFONATE SODIUM
  10. VIT B COMPLEX [Concomitant]
  11. PANTOPRAZOLE SODIUM [Concomitant]
     Dosage: DRUG: PANTAZOL
     Dates: start: 20090707
  12. NOVALGIN [Concomitant]
     Dates: start: 20091007, end: 20091009
  13. LYRICA [Concomitant]
     Dates: start: 20091004, end: 20091009

REACTIONS (1)
  - TRIGGER FINGER [None]
